FAERS Safety Report 20372021 (Version 2)
Quarter: 2022Q1

REPORT INFORMATION
  Report Type: Report from Study
  Country: JP (occurrence: JP)
  Receive Date: 20220124
  Receipt Date: 20220204
  Transmission Date: 20220423
  Serious: No
  Sender: FDA-Public Use
  Company Number: JP-BIOGEN-2019BI00690721

PATIENT
  Age: 1 Year
  Sex: Female
  Weight: 8.5 kg

DRUGS (18)
  1. SPINRAZA [Suspect]
     Active Substance: NUSINERSEN
     Indication: Spinal muscular atrophy
     Route: 050
     Dates: start: 20180320, end: 20180320
  2. SPINRAZA [Suspect]
     Active Substance: NUSINERSEN
     Route: 050
     Dates: start: 20180724, end: 20180724
  3. SPINRAZA [Suspect]
     Active Substance: NUSINERSEN
     Route: 050
     Dates: start: 20181121, end: 20181121
  4. SPINRAZA [Suspect]
     Active Substance: NUSINERSEN
     Route: 050
     Dates: start: 20190319, end: 20190319
  5. SPINRAZA [Suspect]
     Active Substance: NUSINERSEN
     Route: 050
     Dates: start: 20190723, end: 20190723
  6. SPINRAZA [Suspect]
     Active Substance: NUSINERSEN
     Route: 050
     Dates: start: 20191120, end: 20191120
  7. SPINRAZA [Suspect]
     Active Substance: NUSINERSEN
     Route: 050
     Dates: start: 20200311, end: 20210310
  8. CLARITH:DRYSYRUP [Concomitant]
     Indication: Bronchitis chronic
     Route: 050
  9. CARBOCYSTEINE [Concomitant]
     Active Substance: CARBOCYSTEINE
     Indication: Bronchitis chronic
     Dosage: TOTAL DAILY DOSE: 300-420 MG
     Route: 050
  10. AMBROXOL HYDROCHLORIDE [Concomitant]
     Active Substance: AMBROXOL HYDROCHLORIDE
     Indication: Bronchitis chronic
     Dosage: TOTAL DAILY DOSE: 9-12 MG
     Route: 050
  11. LIDOCAINE [Concomitant]
     Active Substance: LIDOCAINE
     Indication: Anaesthesia procedure
     Dates: start: 20180320, end: 20180320
  12. MIDAZOLAM [Concomitant]
     Active Substance: MIDAZOLAM
     Indication: Anaesthesia procedure
     Dosage: TOTAL DAILY DOSE: 1-1.5 MG
     Route: 050
     Dates: start: 20180724, end: 20180724
  13. MIDAZOLAM [Concomitant]
     Active Substance: MIDAZOLAM
     Dosage: TOTAL DAILY DOSE: 1-1.5 MG
     Route: 050
     Dates: start: 20181121, end: 20181121
  14. MIDAZOLAM [Concomitant]
     Active Substance: MIDAZOLAM
     Dosage: TOTAL DAILY DOSE: 1-1.5 MG
     Route: 050
     Dates: start: 20190319, end: 20190319
  15. MIDAZOLAM [Concomitant]
     Active Substance: MIDAZOLAM
     Dosage: TOTAL DAILY DOSE: 1-1.5 MG
     Route: 050
     Dates: start: 20190723, end: 20190723
  16. MIDAZOLAM [Concomitant]
     Active Substance: MIDAZOLAM
     Dosage: TOTAL DAILY DOSE: 1-1.5 MG
     Route: 050
     Dates: start: 20191120, end: 20191120
  17. MIDAZOLAM [Concomitant]
     Active Substance: MIDAZOLAM
     Route: 050
     Dates: start: 20200311
  18. XYLOCAINE [Concomitant]
     Active Substance: LIDOCAINE HYDROCHLORIDE
     Indication: Anaesthesia procedure
     Route: 058

REACTIONS (2)
  - Chronic gastritis [Not Recovered/Not Resolved]
  - Inappropriate schedule of product administration [Unknown]

NARRATIVE: CASE EVENT DATE: 20181120
